FAERS Safety Report 8124360-3 (Version None)
Quarter: 2012Q1

REPORT INFORMATION
  Report Type: 
  Country: None (occurrence: None)
  Receive Date: 20120209
  Receipt Date: 20120130
  Transmission Date: 20120608
  Serious: Yes (Hospitalization)
  Sender: FDA-Public Use
  Company Number: US-ELI_LILLY_AND_COMPANY-US201202000134

PATIENT
  Age: 45 Year
  Sex: Female

DRUGS (3)
  1. CYMBALTA [Suspect]
     Indication: MUSCULOSKELETAL PAIN
     Dosage: 60 MG, QD
     Dates: start: 20090101, end: 20111218
  2. AMBIEN [Concomitant]
     Indication: SLEEP DISORDER
  3. CYMBALTA [Suspect]
     Dosage: 30 MG, QD
     Dates: start: 20111219

REACTIONS (14)
  - DRUG INEFFECTIVE [None]
  - TREMOR [None]
  - HEART RATE INCREASED [None]
  - ANXIETY [None]
  - DIARRHOEA [None]
  - NAUSEA [None]
  - NERVOUSNESS [None]
  - DRUG WITHDRAWAL SYNDROME [None]
  - INSOMNIA [None]
  - HYSTERECTOMY [None]
  - FEELING ABNORMAL [None]
  - PANIC REACTION [None]
  - NIGHTMARE [None]
  - WEIGHT DECREASED [None]
